FAERS Safety Report 5002620-2 (Version None)
Quarter: 2006Q2

REPORT INFORMATION
  Report Type: 
  Country: None (occurrence: None)
  Receive Date: 20060510
  Receipt Date: 20060503
  Transmission Date: 20061013
  Serious: Yes (Death)
  Sender: FDA-Public Use
  Company Number: 0605-285

PATIENT
  Age: 1 Day
  Sex: Male
  Weight: 0.9072 kg

DRUGS (7)
  1. CUROSURF [Suspect]
     Indication: LUNG DISORDER
     Dosage: 160 MG, INTRATRACHEAL
     Route: 039
     Dates: start: 20060331
  2. PENICILLIN G [Concomitant]
  3. GENTAMICIN [Concomitant]
  4. DOPMIN - DOPAMINE HYDROCHLORIDE [Concomitant]
  5. ADRENALINE [Concomitant]
  6. OXYCODONE HCL [Concomitant]
  7. MIDAZOLAM HCL [Concomitant]

REACTIONS (6)
  - CEREBRAL HAEMORRHAGE NEONATAL [None]
  - DEATH NEONATAL [None]
  - NEONATAL RESPIRATORY FAILURE [None]
  - PNEUMOTHORAX [None]
  - RENAL FAILURE NEONATAL [None]
  - THERAPY NON-RESPONDER [None]
